FAERS Safety Report 7578773-9 (Version None)
Quarter: 2011Q2

REPORT INFORMATION
  Report Type: 
  Country: None (occurrence: None)
  Receive Date: 20110628
  Receipt Date: 20110624
  Transmission Date: 20111010
  Serious: No
  Sender: FDA-Public Use
  Company Number: US-PFIZER INC-A020558

PATIENT
  Sex: Female
  Weight: 78 kg

DRUGS (4)
  1. ZIAC [Concomitant]
     Indication: BLOOD PRESSURE ABNORMAL
     Dosage: UNK
     Route: 048
     Dates: start: 19930101
  2. ZOLOFT [Interacting]
     Dosage: 50 MG, DAILY
     Route: 048
     Dates: start: 20000513, end: 20110624
  3. BISOPROLOL FUMARATE AND HYDROCHLOROTHIAZIDE [Interacting]
     Indication: BLOOD PRESSURE ABNORMAL
     Dosage: UNK, DAILY
  4. ZOLOFT [Suspect]
     Indication: DEPRESSION
     Dosage: 25 MG, 1X/DAY

REACTIONS (7)
  - FATIGUE [None]
  - APATHY [None]
  - ABNORMAL DREAMS [None]
  - SOMNOLENCE [None]
  - DRUG INTERACTION [None]
  - HEADACHE [None]
  - INSOMNIA [None]
